FAERS Safety Report 7733339-2 (Version None)
Quarter: 2011Q3

REPORT INFORMATION
  Report Type: 
  Country: None (occurrence: None)
  Receive Date: 20110907
  Receipt Date: 20110825
  Transmission Date: 20111222
  Serious: Yes (Other)
  Sender: FDA-Public Use
  Company Number: US-ASTRAZENECA-2011SE44448

PATIENT
  Age: 55 Year
  Sex: Female

DRUGS (8)
  1. SYNTHROID [Concomitant]
     Route: 048
  2. SYNTHROID [Concomitant]
     Route: 048
  3. ACETAMINOPHEN [Concomitant]
     Route: 048
  4. AMBIEN [Concomitant]
     Route: 048
  5. MULTI-VITAMINS [Concomitant]
     Route: 048
  6. ACETAMINOPHEN [Concomitant]
     Dosage: DAILY
     Route: 048
  7. CALCIUM CARBONATE [Concomitant]
     Dosage: TOTAL DAILY DOSE 1200 - 1000 MILLIGRAM, BID
     Route: 048
  8. VANDETANIB [Suspect]
     Indication: THYROID CANCER
     Route: 048
     Dates: start: 20110610, end: 20110721

REACTIONS (11)
  - LOSS OF CONSCIOUSNESS [None]
  - ORAL PAIN [None]
  - FATIGUE [None]
  - ELECTROCARDIOGRAM QT PROLONGED [None]
  - DRY MOUTH [None]
  - BLOOD PRESSURE INCREASED [None]
  - EPISTAXIS [None]
  - OROPHARYNGEAL BLISTERING [None]
  - HYPERHIDROSIS [None]
  - VISION BLURRED [None]
  - INSOMNIA [None]
